FAERS Safety Report 25207996 (Version 1)
Quarter: 2025Q2

REPORT INFORMATION
  Report Type: Spontaneous
  Country: US (occurrence: US)
  Receive Date: 20250417
  Receipt Date: 20250417
  Transmission Date: 20250716
  Serious: No
  Sender: BIOGEN
  Company Number: US-BIOGEN-2025BI01308019

PATIENT
  Sex: Female

DRUGS (2)
  1. TYSABRI [Suspect]
     Active Substance: NATALIZUMAB
     Indication: Product used for unknown indication
     Route: 050
     Dates: start: 202411, end: 202502
  2. BACLOFEN [Concomitant]
     Active Substance: BACLOFEN
     Route: 050

REACTIONS (1)
  - Pain in extremity [Unknown]
